FAERS Safety Report 9713962 (Version 1)
Quarter: 2013Q4

REPORT INFORMATION
  Report Type: Spontaneous
  Country: US (occurrence: US)
  Receive Date: 20131126
  Receipt Date: 20131126
  Transmission Date: 20140711
  Serious: No
  Sender: FDA-Public Use
  Company Number: US-GILEAD-2008-0018297

PATIENT
  Sex: Female

DRUGS (16)
  1. LETAIRIS [Suspect]
     Indication: PULMONARY ARTERIAL HYPERTENSION
     Route: 048
     Dates: start: 20080827
  2. ATENOLOL [Concomitant]
  3. WARFARIN [Concomitant]
  4. TRICOR [Concomitant]
  5. LANTUS [Concomitant]
  6. SPIRONOLACTONE [Concomitant]
  7. PREDNISONE [Concomitant]
  8. CALCIUM [Concomitant]
  9. OMEGA 3 [Concomitant]
  10. TYLENOL [Concomitant]
  11. CRESTOR [Concomitant]
  12. POTASSIUM [Concomitant]
  13. COMBIVENT [Concomitant]
  14. METOPROLOL [Concomitant]
  15. LEVOTHROID [Concomitant]
  16. DIGOXIN [Concomitant]

REACTIONS (1)
  - Headache [Recovered/Resolved]
